FAERS Safety Report 6661490-7 (Version None)
Quarter: 2010Q1

REPORT INFORMATION
  Report Type: 
  Country: None (occurrence: None)
  Receive Date: 20100331
  Receipt Date: 20100319
  Transmission Date: 20100710
  Serious: Yes (Other)
  Sender: FDA-Public Use
  Company Number: GB-PFIZER INC-2010035344

PATIENT
  Age: 99 Year
  Sex: Male

DRUGS (3)
  1. PRAZOSIN HCL [Suspect]
     Route: 048
  2. SENNA [Concomitant]
  3. VITAMIN B COMPLEX TAB [Concomitant]

REACTIONS (1)
  - FALL [None]
